FAERS Safety Report 7864798-2 (Version None)
Quarter: 2011Q4

REPORT INFORMATION
  Report Type: 
  Country: None (occurrence: None)
  Receive Date: 20111026
  Receipt Date: 20111010
  Transmission Date: 20120403
  Serious: Yes (Other)
  Sender: FDA-Public Use
  Company Number: THQ2011A06293

PATIENT
  Age: 52 Year
  Sex: Male

DRUGS (3)
  1. ACTOS [Suspect]
     Indication: TYPE 2 DIABETES MELLITUS
     Dosage: 30 MG (1 D), PER ORAL
     Dates: start: 20080101, end: 20110701
  2. UNSPECIFIED MEDICATION [Concomitant]
  3. ALLOPURINOL [Concomitant]

REACTIONS (1)
  - BLADDER CANCER [None]
